FAERS Safety Report 17762307 (Version 1)
Quarter: 2020Q2

REPORT INFORMATION
  Report Type: Report from Study
  Country: BR (occurrence: BR)
  Receive Date: 20200508
  Receipt Date: 20200508
  Transmission Date: 20200714
  Serious: Yes (Other)
  Sender: FDA-Public Use
  Company Number: BR-JNJFOC-20200436822

PATIENT
  Age: 66 Year
  Sex: Male
  Weight: 90 kg

DRUGS (2)
  1. ABIRATERONE. [Suspect]
     Active Substance: ABIRATERONE ACETATE
     Indication: PROSTATE CANCER
     Dosage: MOST RECENT DOSE ON 28-APR-2020
     Route: 048
     Dates: start: 20200330, end: 20200428
  2. ERLEADA [Suspect]
     Active Substance: APALUTAMIDE
     Indication: PROSTATE CANCER
     Dosage: MOST RECENT DOSE ON 28-APR-2020
     Route: 048
     Dates: start: 20200330, end: 20200428

REACTIONS (1)
  - Overdose [Recovered/Resolved]

NARRATIVE: CASE EVENT DATE: 20200426
